FAERS Safety Report 16913166 (Version 1)
Quarter: 2019Q4

REPORT INFORMATION
  Report Type: Spontaneous
  Country: US (occurrence: US)
  Receive Date: 20191011
  Receipt Date: 20191011
  Transmission Date: 20200122
  Serious: Yes (Life-Threatening)
  Sender: FDA-Public Use
  Company Number: None

PATIENT
  Age: 63 Year
  Sex: Female

DRUGS (6)
  1. COSENTYX [Suspect]
     Active Substance: SECUKINUMAB
     Indication: ANKYLOSING SPONDYLITIS
     Dosage: ?          OTHER FREQUENCY:ONCE MONTHLY;?
     Route: 058
     Dates: start: 20190409
  2. MORPHINE [Concomitant]
     Active Substance: MORPHINE
  3. PERCOCET [Concomitant]
     Active Substance: ACETAMINOPHEN\OXYCODONE HYDROCHLORIDE
  4. SULFASALAZINE. [Concomitant]
     Active Substance: SULFASALAZINE
  5. VENTOLIN [Concomitant]
     Active Substance: ALBUTEROL SULFATE
  6. NAPROXEN. [Concomitant]
     Active Substance: NAPROXEN

REACTIONS (1)
  - Breast cancer stage IV [None]

NARRATIVE: CASE EVENT DATE: 20191011
